FAERS Safety Report 7030265 (Version 1)
Quarter: 2020Q3

REPORT INFORMATION
  Report Type: Report from Study
  Country: US (occurrence: US)
  Receive Date: 20090623
  Receipt Date: 20090623
  Transmission Date: 20201104
  Serious: Yes (Other)
  Sender: FDA-Public Use
  Company Number: US-ROCHE-638318

PATIENT
  Age: 82 Year
  Sex: Female

DRUGS (3)
  1. IBANDRONIC ACID. [Suspect]
     Active Substance: IBANDRONIC ACID
     Indication: OSTEOPOROSIS
     Route: 048
     Dates: start: 200801
  2. PRILOSEC [Concomitant]
     Active Substance: OMEPRAZOLE MAGNESIUM
     Dosage: OVER THE COUNTER.
  3. PLAQUENIL [Concomitant]
     Active Substance: HYDROXYCHLOROQUINE SULFATE
     Dosage: DRUG REPORTED AS: PLAQUININE.

REACTIONS (2)
  - Lower limb fracture [Recovering/Resolving]
  - Fall [None]

NARRATIVE: CASE EVENT DATE: 20090519
